FAERS Safety Report 7034670-9 (Version None)
Quarter: 2010Q4

REPORT INFORMATION
  Report Type: 
  Country: None (occurrence: None)
  Receive Date: 20101008
  Receipt Date: 20100927
  Transmission Date: 20110411
  Serious: Yes (Other)
  Sender: FDA-Public Use
  Company Number: FR-JNJFOC-20091005917

PATIENT
  Age: 40 Year
  Sex: Male

DRUGS (2)
  1. TOPALGIC [Suspect]
     Indication: BACK PAIN
     Route: 065
  2. TRAMADOL HYDROCHLORIDE [Suspect]
     Indication: PRODUCT USED FOR UNKNOWN INDICATION
     Route: 065

REACTIONS (10)
  - ABDOMINAL PAIN [None]
  - DRUG ABUSE [None]
  - DRUG DEPENDENCE [None]
  - INSOMNIA [None]
  - MYALGIA [None]
  - NASOPHARYNGITIS [None]
  - OVERDOSE [None]
  - RHINORRHOEA [None]
  - TIC [None]
  - WITHDRAWAL SYNDROME [None]
